FAERS Safety Report 7224762-3 (Version None)
Quarter: 2011Q1

REPORT INFORMATION
  Report Type: 
  Country: None (occurrence: None)
  Receive Date: 20110103
  Receipt Date: 20101221
  Transmission Date: 20110831
  Serious: Yes (Hospitalization)
  Sender: FDA-Public Use
  Company Number: 2010MA005505

PATIENT
  Age: 38 Year
  Sex: Male

DRUGS (2)
  1. FEVERALL [Suspect]
     Dosage: 30 DF; PO
     Route: 048
     Dates: start: 20101201
  2. CLOZARIL [Suspect]
     Indication: SCHIZOPHRENIA
     Dosage: PO
     Route: 048
     Dates: start: 19950307

REACTIONS (3)
  - OVERDOSE [None]
  - ACUTE HEPATIC FAILURE [None]
  - OFF LABEL USE [None]
